FAERS Safety Report 18491494 (Version 1)
Quarter: 2020Q4

REPORT INFORMATION
  Report Type: Spontaneous
  Country: US (occurrence: US)
  Receive Date: 20201111
  Receipt Date: 20201111
  Transmission Date: 20210114
  Serious: Yes (Hospitalization)
  Sender: FDA-Public Use
  Company Number: US-TEVA-2020-US-1847569

PATIENT
  Age: 64 Year
  Sex: Female
  Weight: 65.77 kg

DRUGS (2)
  1. XELJANZ XR [Suspect]
     Active Substance: TOFACITINIB CITRATE
     Indication: RHEUMATOID ARTHRITIS
     Dosage: 11 MILLIGRAM DAILY;
     Route: 048
     Dates: start: 2020, end: 20201019
  2. ESTRADIOL TEVA [Suspect]
     Active Substance: ESTRADIOL
     Dosage: 1 MILLIGRAM DAILY; START DATE: STARTED ABOUT 15 YEARS AGO
     Route: 048
     Dates: end: 20201019

REACTIONS (1)
  - Pulmonary embolism [Recovering/Resolving]

NARRATIVE: CASE EVENT DATE: 20201019
